FAERS Safety Report 6230089-9 (Version None)
Quarter: 2009Q2

REPORT INFORMATION
  Report Type: 
  Country: None (occurrence: None)
  Receive Date: 20090615
  Receipt Date: 20090604
  Transmission Date: 20091009
  Serious: Yes (Other)
  Sender: FDA-Public Use
  Company Number: US-GENENTECH-284346

PATIENT
  Sex: Female

DRUGS (2)
  1. HERCEPTIN [Suspect]
     Indication: DRUG USE FOR UNKNOWN INDICATION
     Dosage: UNK
  2. PROCRIT [Concomitant]
     Indication: ANAEMIA
     Dosage: UNK
     Dates: start: 20080901, end: 20090101

REACTIONS (3)
  - BONE MARROW FAILURE [None]
  - MENISCUS LESION [None]
  - PERIPHERAL COLDNESS [None]
